FAERS Safety Report 24691361 (Version 1)
Quarter: 2024Q4

REPORT INFORMATION
  Report Type: Spontaneous
  Country: US (occurrence: US)
  Receive Date: 20241203
  Receipt Date: 20241203
  Transmission Date: 20250115
  Serious: No
  Sender: Harrow Health
  Company Number: US-IMP-2024001047

PATIENT
  Age: 70 Year
  Sex: Female

DRUGS (1)
  1. VEVYE [Suspect]
     Active Substance: CYCLOSPORINE
     Indication: Dry eye
     Route: 047
     Dates: start: 20241030, end: 20241105

REACTIONS (5)
  - Visual impairment [Unknown]
  - Dry eye [Unknown]
  - Discomfort [Unknown]
  - Photophobia [Unknown]
  - Instillation site irritation [Unknown]

NARRATIVE: CASE EVENT DATE: 20241031
